FAERS Safety Report 4843892-4 (Version None)
Quarter: 2005Q4

REPORT INFORMATION
  Report Type: 
  Country: None (occurrence: None)
  Receive Date: 20051202
  Receipt Date: 20050907
  Transmission Date: 20060501
  Serious: Yes (Hospitalization, Disabling)
  Sender: FDA-Public Use
  Company Number: US-MERCK-0509USA00885

PATIENT
  Age: 43 Year
  Sex: Female
  Weight: 66 kg

DRUGS (12)
  1. VIOXX [Suspect]
     Indication: OSTEOARTHRITIS
     Route: 048
     Dates: start: 19991101, end: 20040930
  2. SYNTHROID [Concomitant]
     Indication: THYROID DISORDER
     Route: 065
  3. NITROQUICK [Concomitant]
     Route: 065
  4. FERROUS SULFATE [Concomitant]
     Route: 065
  5. TRIAMCINOLONE [Concomitant]
     Route: 065
  6. NORTRIPTYLINE [Concomitant]
     Route: 065
  7. BIAXIN XL [Concomitant]
     Route: 065
  8. MECLIZINE [Concomitant]
     Route: 065
  9. LEVAQUIN [Concomitant]
     Route: 065
  10. BUSPIRONE HYDROCHLORIDE [Concomitant]
     Route: 065
  11. PREMPRO [Concomitant]
     Indication: HORMONE REPLACEMENT THERAPY
     Route: 065
     Dates: start: 19940101
  12. [THERAPY UNSPECIFIED] [Concomitant]
     Route: 065

REACTIONS (12)
  - ANXIETY DISORDER [None]
  - ARRHYTHMIA [None]
  - BLOOD CHOLESTEROL INCREASED [None]
  - CHEST PAIN [None]
  - CHOLECYSTITIS CHRONIC [None]
  - CHOLELITHIASIS [None]
  - CHRONIC FATIGUE SYNDROME [None]
  - CORONARY ARTERY DISEASE [None]
  - GASTROOESOPHAGEAL REFLUX DISEASE [None]
  - MYOCARDIAL INFARCTION [None]
  - PANIC DISORDER [None]
  - SINUS TACHYCARDIA [None]
